FAERS Safety Report 7105999-0 (Version None)
Quarter: 2010Q4

REPORT INFORMATION
  Report Type: 
  Country: None (occurrence: None)
  Receive Date: 20101116
  Receipt Date: 20101105
  Transmission Date: 20110411
  Serious: Yes (Other)
  Sender: FDA-Public Use
  Company Number: CA-JNJFOC-20101103178

PATIENT
  Sex: Female
  Weight: 63.3 kg

DRUGS (12)
  1. REMICADE [Suspect]
     Indication: RHEUMATOID ARTHRITIS
     Route: 042
  2. REMICADE [Suspect]
     Route: 042
  3. OGEN [Concomitant]
  4. HYDROCHLOROTHIAZIDE [Concomitant]
  5. DICLOFENAC SODIUM [Concomitant]
  6. FOLIC ACID [Concomitant]
  7. METHOTREXATE [Concomitant]
  8. ACEBUTOLOL [Concomitant]
  9. SYNTHROID [Concomitant]
  10. TYLENOL [Concomitant]
  11. PREDNISONE [Concomitant]
  12. CORTISONE [Concomitant]

REACTIONS (1)
  - SURGERY [None]
